FAERS Safety Report 5053581-1 (Version None)
Quarter: 2006Q3

REPORT INFORMATION
  Report Type: 
  Country: None (occurrence: None)
  Receive Date: 20060718
  Receipt Date: 20060710
  Transmission Date: 20061208
  Serious: Yes (Hospitalization, Other)
  Sender: FDA-Public Use
  Company Number: FR-AVENTIS-200612454FR

PATIENT
  Age: 60 Year
  Sex: Female

DRUGS (3)
  1. ARAVA [Suspect]
     Indication: RHEUMATOID ARTHRITIS
     Route: 048
  2. ARAVA [Suspect]
     Route: 048
  3. METHYLPREDNISONE [Concomitant]
     Indication: RHEUMATOID ARTHRITIS

REACTIONS (3)
  - MUCOSAL EROSION [None]
  - PHOTOSENSITIVITY REACTION [None]
  - RHABDOMYOLYSIS [None]
